FAERS Safety Report 8041438-3 (Version None)
Quarter: 2012Q1

REPORT INFORMATION
  Report Type: 
  Country: None (occurrence: None)
  Receive Date: 20120112
  Receipt Date: 20120109
  Transmission Date: 20120608
  Serious: Yes (Disabling)
  Sender: FDA-Public Use
  Company Number: AU-PFIZER INC-2012000469

PATIENT
  Sex: Male

DRUGS (1)
  1. DILANTIN [Suspect]
     Indication: CONVULSION
     Dosage: 200MG IN THE MORNING AND 300MG AT NIGHT
     Route: 048

REACTIONS (3)
  - AMNESIA [None]
  - PRURITUS [None]
  - ACTIVITIES OF DAILY LIVING IMPAIRED [None]
